FAERS Safety Report 7717053-5 (Version None)
Quarter: 2011Q3

REPORT INFORMATION
  Report Type: 
  Country: None (occurrence: None)
  Receive Date: 20110830
  Receipt Date: 20110822
  Transmission Date: 20111222
  Serious: Yes (Death)
  Sender: FDA-Public Use
  Company Number: JP-BRISTOL-MYERS SQUIBB COMPANY-15974264

PATIENT

DRUGS (3)
  1. MITOMYCIN [Suspect]
     Indication: GASTRIC CANCER
     Dosage: INJ,CONTINUED FOR 6 CYCLES UNTILL 5 MONTHS BEFORE ADMISSION
     Route: 065
  2. DOXORUBICIN HYDROCHLORIDE [Suspect]
     Indication: GASTRIC CANCER
     Dosage: INJ,TOTAL DOSE : 225MG/M2
     Route: 065
  3. FLUOROURACIL [Suspect]
     Indication: GASTRIC CANCER
     Dosage: INJ 250 KYOWA,CONTINUED FOR 6 CYCLES UNTILL 5 MONTHS BEFORE ADMISSION
     Route: 065

REACTIONS (1)
  - PULMONARY VENO-OCCLUSIVE DISEASE [None]
